FAERS Safety Report 8586943-6 (Version None)
Quarter: 2012Q3

REPORT INFORMATION
  Report Type: 
  Country: None (occurrence: None)
  Receive Date: 20120810
  Receipt Date: 20120731
  Transmission Date: 20120928
  Serious: Yes (Other)
  Sender: FDA-Public Use
  Company Number: US-CELGENEUS-163-50794-12080449

PATIENT
  Sex: Female

DRUGS (4)
  1. SORAFENIB [Suspect]
     Dosage: 400 MILLIGRAM
     Route: 048
     Dates: start: 20111111, end: 20120206
  2. VIDAZA [Suspect]
     Dosage: 75 MILLIGRAM/SQ. METER
     Route: 041
     Dates: start: 20120120, end: 20120126
  3. VIDAZA [Suspect]
     Dosage: 75 MILLIGRAM/SQ. METER
     Route: 041
     Dates: start: 20111208, end: 20111214
  4. VIDAZA [Suspect]
     Dosage: 75 MILLIGRAM/SQ. METER
     Route: 041
     Dates: start: 20111111, end: 20111117

REACTIONS (1)
  - CARDIOMYOPATHY [None]
